FAERS Safety Report 5394847-5 (Version None)
Quarter: 2007Q3

REPORT INFORMATION
  Report Type: 
  Country: None (occurrence: None)
  Receive Date: 20070723
  Receipt Date: 20070717
  Transmission Date: 20080115
  Serious: Yes (Other)
  Sender: FDA-Public Use
  Company Number: NL-ABBOTT-07P-114-0374958-00

PATIENT

DRUGS (2)
  1. RITONAVIR [Suspect]
     Indication: HIV INFECTION
     Dosage: MEDIAN DOSAGE 125 MG/M**2 (RANGE 100-125)
     Route: 048
  2. INDINAVIR [Suspect]
     Indication: HIV INFECTION
     Dosage: MEDIAN DOSEAGE 400 MG/M**2 (RANGE 300-600)

REACTIONS (2)
  - DRUG TOXICITY [None]
  - RASH [None]
